FAERS Safety Report 16274421 (Version 1)
Quarter: 2019Q2

REPORT INFORMATION
  Report Type: Spontaneous
  Country: US (occurrence: US)
  Receive Date: 20190504
  Receipt Date: 20190504
  Transmission Date: 20190711
  Serious: Yes (Hospitalization, Other)
  Sender: FDA-Public Use
  Company Number: US-TEVA-2019-US-1043893

PATIENT
  Age: 84 Year
  Sex: Female

DRUGS (4)
  1. TAGRISSO [Concomitant]
     Active Substance: OSIMERTINIB
     Dosage: 40 MILLIGRAM DAILY;
     Route: 065
  2. METOPROLOL SUCCINATE ER 50MG ACTAVIS [Suspect]
     Active Substance: METOPROLOL SUCCINATE
     Indication: BLOOD PRESSURE MEASUREMENT
     Dosage: 50 MILLIGRAM DAILY;
     Route: 065
  3. TAGRISSO [Concomitant]
     Active Substance: OSIMERTINIB
     Indication: LUNG CARCINOMA CELL TYPE UNSPECIFIED STAGE IV
     Dosage: 80 MILLIGRAM DAILY;
     Route: 065
     Dates: start: 20190313
  4. TAGRISSO [Concomitant]
     Active Substance: OSIMERTINIB
     Dosage: 80 MILLIGRAM DAILY;
     Route: 065
     Dates: start: 201904

REACTIONS (6)
  - Eating disorder [Not Recovered/Not Resolved]
  - Decreased appetite [Not Recovered/Not Resolved]
  - Thrombosis [Recovering/Resolving]
  - Balance disorder [Recovering/Resolving]
  - Pulmonary oedema [Unknown]
  - Atrial fibrillation [Recovered/Resolved]

NARRATIVE: CASE EVENT DATE: 20190405
